FAERS Safety Report 5131692-X (Version None)
Quarter: 2006Q4

REPORT INFORMATION
  Report Type: 
  Country: None (occurrence: None)
  Receive Date: 20061016
  Receipt Date: 20061005
  Transmission Date: 20070319
  Serious: Yes (Hospitalization)
  Sender: FDA-Public Use
  Company Number: 2006114350

PATIENT
  Age: 18 Year
  Sex: Male
  Weight: 57.4 kg

DRUGS (6)
  1. GENOTROPIN [Suspect]
     Indication: HYPOPITUITARISM
     Dosage: 1.2 MG (1.2 MG, 1 IN 1 D), SUBCUTANEOUS
     Route: 058
     Dates: start: 20030911, end: 20061004
  2. GROWJECT (SOMATROPIN) [Suspect]
     Indication: HYPOPITUITARISM
     Dosage: 1 MG (1 IN 1 D), SUBCUTANEOUS
     Route: 058
     Dates: start: 20010426, end: 20010929
  3. DESMOPRESSIN ACETATE [Concomitant]
  4. CORTRIL [Concomitant]
  5. LEVOTHYROXINE SODIUM [Concomitant]
  6. TESTOSTERONE ENANTHATE [Concomitant]

REACTIONS (2)
  - CNS GERMINOMA [None]
  - RECURRENT CANCER [None]
